FAERS Safety Report 9685079 (Version 1)
Quarter: 2013Q4

REPORT INFORMATION
  Report Type: Report from Study
  Country: GB (occurrence: GB)
  Receive Date: 20131113
  Receipt Date: 20131113
  Transmission Date: 20140711
  Serious: Yes (Hospitalization)
  Sender: FDA-Public Use
  Company Number: GB-AMGEN-GBRCT2013079575

PATIENT
  Age: 55 Year
  Sex: Male
  Weight: 105 kg

DRUGS (7)
  1. ETANERCEPT [Suspect]
     Indication: PRODUCT USED FOR UNKNOWN INDICATION
     Dosage: 50 MG, WEEKLY
     Route: 065
     Dates: start: 20121212
  2. DICLOFENAC [Concomitant]
     Dosage: UNK
     Dates: start: 20050101
  3. PARACETAMOL [Concomitant]
     Dosage: UNK
     Dates: start: 20110812
  4. RAMIPRIL [Concomitant]
     Dosage: UNK
     Dates: start: 20110817
  5. METHOTREXATE [Concomitant]
     Dosage: UNK
     Dates: start: 20120504
  6. FOLIC ACID [Concomitant]
     Dosage: UNK
     Dates: start: 20120504
  7. ALLOPURINOL [Concomitant]
     Dosage: UNK
     Dates: start: 20120515

REACTIONS (1)
  - Cellulitis [Recovered/Resolved]
